FAERS Safety Report 4763534-6 (Version None)
Quarter: 2005Q3

REPORT INFORMATION
  Report Type: 
  Country: None (occurrence: None)
  Receive Date: 20050908
  Receipt Date: 20050830
  Transmission Date: 20060218
  Serious: Yes (Hospitalization)
  Sender: FDA-Public Use
  Company Number: FR-JNJFOC-20050900762

PATIENT
  Age: 94 Year
  Sex: Male

DRUGS (6)
  1. TOPALGIC [Suspect]
     Route: 048
  2. DI-ANTALVIC [Suspect]
     Route: 048
  3. DI-ANTALVIC [Suspect]
     Route: 048
  4. KARDEGIC [Concomitant]
     Route: 048
  5. DILTIAZEM HYDROCHLORIDE [Concomitant]
     Route: 048
  6. PROSCAR [Concomitant]
     Route: 048

REACTIONS (3)
  - ILEUS PARALYTIC [None]
  - INTESTINAL OBSTRUCTION [None]
  - VOMITING [None]
